FAERS Safety Report 7068427-X (Version None)
Quarter: 2010Q4

REPORT INFORMATION
  Report Type: 
  Country: None (occurrence: None)
  Receive Date: 20101028
  Receipt Date: 20101018
  Transmission Date: 20110411
  Serious: Yes (Hospitalization)
  Sender: FDA-Public Use
  Company Number: B0681263A

PATIENT
  Sex: Female

DRUGS (11)
  1. LACOSAMIDE [Suspect]
     Dosage: 150MG TWICE PER DAY
     Route: 048
     Dates: start: 20090101
  2. KEPPRA [Suspect]
     Dosage: 1500MG TWICE PER DAY
     Route: 048
     Dates: start: 20090101, end: 20100401
  3. LAMICTAL [Suspect]
     Dosage: 300MG TWICE PER DAY
     Route: 048
     Dates: start: 20090101
  4. HYDROCORTISONE [Concomitant]
     Indication: ADRENAL INSUFFICIENCY
     Route: 065
  5. ATIVAN [Concomitant]
     Route: 065
  6. VALIUM [Concomitant]
     Route: 065
  7. VITAMIN D [Concomitant]
     Indication: VITAMIN D DEFICIENCY
     Route: 065
  8. AMBIEN [Concomitant]
     Indication: SLEEP DISORDER
     Route: 065
  9. FIORICET [Concomitant]
     Indication: PAIN
     Route: 065
  10. BONIVA [Concomitant]
     Indication: OSTEOPOROSIS
     Route: 065
  11. TRIMETHOPRIM [Concomitant]
     Indication: URINARY TRACT INFECTION
     Route: 065

REACTIONS (7)
  - CONVULSION [None]
  - DYSARTHRIA [None]
  - FATIGUE [None]
  - MIGRAINE [None]
  - NAUSEA [None]
  - SOMNOLENCE [None]
  - VOMITING [None]
